FAERS Safety Report 4612265-1 (Version None)
Quarter: 2005Q1

REPORT INFORMATION
  Report Type: 
  Country: None (occurrence: None)
  Receive Date: 20050316
  Receipt Date: 20050223
  Transmission Date: 20050727
  Serious: Yes (Hospitalization, Other)
  Sender: FDA-Public Use
  Company Number: USA040979519

PATIENT
  Age: 63 Year
  Sex: Female

DRUGS (2)
  1. FORTEO [Suspect]
     Indication: OSTEOPOROSIS
     Dosage: 20 UG DAY
     Dates: start: 20040927
  2. LISINOPRIL [Concomitant]

REACTIONS (9)
  - BLOOD PRESSURE INCREASED [None]
  - CHEST PAIN [None]
  - FEELING HOT [None]
  - HEART RATE INCREASED [None]
  - MEDICAL DEVICE COMPLICATION [None]
  - MEDICATION ERROR [None]
  - PANCREATITIS [None]
  - PHARMACEUTICAL PRODUCT COMPLAINT [None]
  - VOMITING [None]
